FAERS Safety Report 7203463-1 (Version None)
Quarter: 2010Q4

REPORT INFORMATION
  Report Type: 
  Country: None (occurrence: None)
  Receive Date: 20101220
  Receipt Date: 20101214
  Transmission Date: 20110411
  Serious: Yes (Hospitalization)
  Sender: FDA-Public Use
  Company Number: 2010SP061973

PATIENT
  Age: 68 Year
  Sex: Male
  Weight: 60 kg

DRUGS (9)
  1. REBETOL [Suspect]
     Indication: HEPATITIS C
     Dosage: 800 MG;QD;PO
     Route: 048
     Dates: start: 20100810, end: 20101104
  2. INTERFERON [Suspect]
     Indication: HEPATITIS C
     Dosage: 6 MIU;QD;IV, 6 MIU; IV, 6 MIU;TIW;IV
     Route: 042
     Dates: start: 20100810, end: 20100823
  3. INTERFERON [Suspect]
     Indication: HEPATITIS C
     Dosage: 6 MIU;QD;IV, 6 MIU; IV, 6 MIU;TIW;IV
     Route: 042
     Dates: start: 20100824, end: 20100907
  4. INTERFERON [Suspect]
     Indication: HEPATITIS C
     Dosage: 6 MIU;QD;IV, 6 MIU; IV, 6 MIU;TIW;IV
     Route: 042
     Dates: start: 20100908, end: 20101104
  5. AMLODIPINE [Concomitant]
  6. GLIMICRON [Concomitant]
  7. FLUVASTATIN [Concomitant]
  8. SELBEX [Concomitant]
  9. POLARAMINE [Concomitant]

REACTIONS (5)
  - COUGH [None]
  - HAEMOTHORAX [None]
  - PLEURAL EFFUSION [None]
  - PYOTHORAX [None]
  - PYREXIA [None]
